FAERS Safety Report 9244861 (Version 1)
Quarter: 2013Q2

REPORT INFORMATION
  Report Type: Spontaneous
  Country: JP (occurrence: JP)
  Receive Date: 20130422
  Receipt Date: 20130422
  Transmission Date: 20140414
  Serious: No
  Sender: FDA-Public Use
  Company Number: JP-JNJFOC-20130405951

PATIENT
  Sex: Male

DRUGS (9)
  1. DUROTEP MT [Suspect]
     Indication: MUSCULOSKELETAL PAIN
     Route: 062
     Dates: start: 201207
  2. DUROTEP MT [Suspect]
     Indication: MUSCULOSKELETAL PAIN
     Route: 062
  3. DUROTEP MT [Suspect]
     Indication: MUSCULOSKELETAL PAIN
     Route: 062
  4. DUROTEP MT [Suspect]
     Indication: MUSCULOSKELETAL PAIN
     Route: 062
  5. DUROTEP MT [Suspect]
     Indication: NECK PAIN
     Route: 062
  6. DUROTEP MT [Suspect]
     Indication: NECK PAIN
     Route: 062
  7. DUROTEP MT [Suspect]
     Indication: NECK PAIN
     Route: 062
  8. DUROTEP MT [Suspect]
     Indication: NECK PAIN
     Route: 062
     Dates: start: 201207
  9. TRAMCET [Suspect]
     Indication: PAIN
     Route: 048

REACTIONS (4)
  - Flank pain [Unknown]
  - Constipation [Unknown]
  - Treatment noncompliance [Unknown]
  - Decreased appetite [Unknown]
